FAERS Safety Report 23375653 (Version 1)
Quarter: 2024Q1

REPORT INFORMATION
  Report Type: Spontaneous
  Country: US (occurrence: US)
  Receive Date: 20240107
  Receipt Date: 20240107
  Transmission Date: 20240410
  Serious: No
  Sender: FDA-Public Use
  Company Number: US-Blueprint Medicines Corporation-1902

PATIENT
  Sex: Female

DRUGS (1)
  1. AYVAKIT [Suspect]
     Active Substance: AVAPRITINIB
     Indication: Advanced systemic mastocytosis
     Route: 065
     Dates: start: 20210805

REACTIONS (8)
  - Tooth infection [Unknown]
  - Vision blurred [Unknown]
  - Stomatitis [Unknown]
  - Lacrimation increased [Unknown]
  - Eye discharge [Unknown]
  - Bone pain [Unknown]
  - Tendonitis [Unknown]
  - Intentional dose omission [Unknown]
